FAERS Safety Report 13000805 (Version 1)
Quarter: 2016Q4

REPORT INFORMATION
  Report Type: Report from Study
  Country: JP (occurrence: JP)
  Receive Date: 20161206
  Receipt Date: 20161206
  Transmission Date: 20170207
  Serious: Yes (Hospitalization)
  Sender: FDA-Public Use
  Company Number: JP-SHIRE-JP201613308

PATIENT
  Age: 47 Year
  Sex: Female

DRUGS (20)
  1. ROCALTROL [Concomitant]
     Active Substance: CALCITRIOL
     Indication: PRODUCT USED FOR UNKNOWN INDICATION
     Dosage: 0.5 ?G, UNKNOWN
     Route: 048
     Dates: start: 20100608, end: 20110526
  2. ARGAMATE [Concomitant]
     Active Substance: CALCIUM POLYSTYRENE SULFONATE
     Indication: PRODUCT USED FOR UNKNOWN INDICATION
     Dosage: 25 G, UNKNOWN
     Route: 048
  3. BASEN                              /01290601/ [Concomitant]
     Active Substance: VOGLIBOSE
     Indication: PRODUCT USED FOR UNKNOWN INDICATION
     Dosage: 0.6 MG, UNKNOWN
     Route: 048
  4. THYRADIN [Suspect]
     Active Substance: LEVOTHYROXINE
     Indication: HYPERPHOSPHATAEMIA
     Dosage: 150 ?G, UNKNOWN
     Route: 048
     Dates: start: 20101215
  5. THYRADIN [Suspect]
     Active Substance: LEVOTHYROXINE
     Dosage: 200 ?G, UNKNOWN
     Route: 048
     Dates: end: 20100831
  6. RENAGEL [Concomitant]
     Active Substance: SEVELAMER HYDROCHLORIDE
     Indication: HYPERPHOSPHATAEMIA
     Dosage: 7500 MG, UNKNOWN
     Route: 048
  7. ROCALTROL [Concomitant]
     Active Substance: CALCITRIOL
     Dosage: 0.25 ?G, UNKNOWN
     Route: 048
     Dates: start: 20110527, end: 20130912
  8. REGPARA [Concomitant]
     Active Substance: CINACALCET HYDROCHLORIDE
     Dosage: 75 MG, UNKNOWN
     Route: 048
     Dates: start: 20140521
  9. OXAROL [Concomitant]
     Active Substance: MAXACALCITOL
     Dosage: 15 ?G, 1X/WEEK
     Route: 042
     Dates: start: 20160718
  10. 405 (LANTHANUM CARBONATE) [Suspect]
     Active Substance: LANTHANUM CARBONATE
     Dosage: 2250 MG, UNKNOWN (/DAY)
     Route: 048
     Dates: start: 20140514, end: 20140707
  11. ROCALTROL [Concomitant]
     Active Substance: CALCITRIOL
     Dosage: 0.5 ?G, UNKNOWN
     Route: 048
     Dates: start: 20130913, end: 20140620
  12. REGPARA [Concomitant]
     Active Substance: CINACALCET HYDROCHLORIDE
     Dosage: 50 MG, UNKNOWN
     Route: 048
     Dates: start: 20140305, end: 20140520
  13. REGPARA [Concomitant]
     Active Substance: CINACALCET HYDROCHLORIDE
     Indication: HYPERPARATHYROIDISM SECONDARY
     Dosage: 25 MG, UNKNOWN
     Route: 048
     Dates: start: 20140115, end: 20140304
  14. OXAROL [Concomitant]
     Active Substance: MAXACALCITOL
     Indication: PRODUCT USED FOR UNKNOWN INDICATION
     Dosage: 0.5 ?G, 1X/WEEK
     Route: 042
     Dates: start: 20141112, end: 20150520
  15. 405 (LANTHANUM CARBONATE) [Suspect]
     Active Substance: LANTHANUM CARBONATE
     Indication: HYPERPHOSPHATAEMIA
     Dosage: 1500 MG, UNKNOWN (/DAY)
     Route: 048
     Dates: start: 20140708
  16. 405 (LANTHANUM CARBONATE) [Suspect]
     Active Substance: LANTHANUM CARBONATE
     Dosage: 1500 MG, UNKNOWN (/DAY)
     Route: 048
     Dates: start: 20131106, end: 20140513
  17. THYRADIN [Suspect]
     Active Substance: LEVOTHYROXINE
     Dosage: 300 ?G, UNKNOWN
     Route: 048
     Dates: start: 20100901, end: 20101214
  18. DIALEAD [Concomitant]
     Indication: PRODUCT USED FOR UNKNOWN INDICATION
     Dosage: 10 MG, UNKNOWN
     Route: 048
  19. 405 (LANTHANUM CARBONATE) [Suspect]
     Active Substance: LANTHANUM CARBONATE
     Indication: HYPERPHOSPHATAEMIA
     Dosage: 750 MG, UNKNOWN (/DAY)
     Route: 048
     Dates: start: 20100709, end: 20131105
  20. OXAROL [Concomitant]
     Active Substance: MAXACALCITOL
     Dosage: 10 ?G, 1X/WEEK
     Route: 042
     Dates: start: 20150522, end: 20160715

REACTIONS (1)
  - Clavicle fracture [Recovering/Resolving]

NARRATIVE: CASE EVENT DATE: 20160531
